FAERS Safety Report 9868352 (Version 2)
Quarter: 2014Q1

REPORT INFORMATION
  Report Type: Spontaneous
  Country: US (occurrence: US)
  Receive Date: 20140204
  Receipt Date: 20140204
  Transmission Date: 20141002
  Serious: Yes (Hospitalization)
  Sender: FDA-Public Use
  Company Number: US-B.I. PHARMACEUTICALS,INC./RIDGEFIELD-2012-BP-11012BP

PATIENT
  Sex: Male
  Weight: 120.2 kg

DRUGS (21)
  1. PRADAXA [Suspect]
     Indication: ATRIAL FIBRILLATION
     Dates: start: 20110224, end: 20110318
  2. PRADAXA [Suspect]
     Indication: ANTICOAGULANT THERAPY
  3. ATENOLOL [Concomitant]
     Dates: start: 200604, end: 201101
  4. GEMFIBROZIL [Concomitant]
     Dates: start: 200604, end: 201102
  5. PAROXETINE [Concomitant]
     Dates: start: 200602, end: 201102
  6. CRESTOR [Concomitant]
     Dates: start: 200605, end: 201102
  7. CYMBALTA [Concomitant]
     Dates: start: 200704, end: 201101
  8. HYDROC/APAP [Concomitant]
     Dates: start: 200805, end: 201101
  9. ZOLPIDEM [Concomitant]
     Dates: start: 201005, end: 201102
  10. ASPIRIN [Concomitant]
  11. LORATADINE [Concomitant]
  12. MEGA 3 FISH OILS [Concomitant]
  13. MULTIVITAMIN [Concomitant]
  14. VITAMIN C [Concomitant]
  15. NIACIN [Concomitant]
  16. GLUCOSAMINE/CHONDROITIN [Concomitant]
  17. MAGNESIUM SULFATE [Concomitant]
  18. KLOR-CON [Concomitant]
  19. ADVAIR [Concomitant]
  20. SPIRIVA [Concomitant]
  21. BYSTOLIC [Concomitant]

REACTIONS (1)
  - Gastrointestinal haemorrhage [Unknown]
